FAERS Safety Report 8879742 (Version 3)
Quarter: 2012Q4

REPORT INFORMATION
  Report Type: Report from Study
  Country: US (occurrence: US)
  Receive Date: 20121101
  Receipt Date: 20121112
  Transmission Date: 20130627
  Serious: Yes (Death, Hospitalization, Other)
  Sender: FDA-Public Use
  Company Number: US-CELGENEUS-163-20785-12103416

PATIENT
  Age: 80 Year
  Sex: Male
  Weight: 81.36 kg

DRUGS (21)
  1. THALOMID [Suspect]
     Indication: MYELOMA
     Dosage: 100 Milligram
     Route: 048
     Dates: start: 20100205, end: 20120726
  2. THALOMID [Suspect]
     Dosage: 50 Milligram
     Route: 048
     Dates: start: 20100827
  3. THALOMID [Suspect]
     Dosage: 50 Milligram
     Route: 048
     Dates: start: 20120629, end: 20120726
  4. MELPHALAN [Suspect]
     Indication: MYELOMA
     Dosage: 9 milligram/sq. meter
     Route: 048
     Dates: start: 20100205, end: 20101220
  5. PREDNISONE [Suspect]
     Indication: MYELOMA
     Dosage: 100 milligram/sq. meter
     Route: 048
     Dates: start: 20100205, end: 20101220
  6. ANTIBIOTICS [Concomitant]
     Indication: CELLULITIS OF ARM
     Route: 041
     Dates: start: 20120914
  7. ENTERIC COATED ASPIRIN [Concomitant]
     Indication: DRUG USE FOR UNKNOWN INDICATION
     Dosage: 325 Milligram
     Route: 048
  8. ACETAMINOPHEN [Concomitant]
     Indication: DRUG USE FOR UNKNOWN INDICATION
     Route: 048
  9. ALLOPURINOL [Concomitant]
     Indication: DRUG USE FOR UNKNOWN INDICATION
     Dosage: 100 Milligram
     Route: 048
     Dates: start: 20120802
  10. BUMETANIDE [Concomitant]
     Indication: DRUG USE FOR UNKNOWN INDICATION
     Dosage: 2 Milligram
     Route: 065
     Dates: start: 20120913
  11. DILTIAZEM [Concomitant]
     Indication: DRUG USE FOR UNKNOWN INDICATION
     Dosage: 120 Milligram
     Route: 048
     Dates: start: 20120618
  12. DOCUSATE SODIUM [Concomitant]
     Indication: DRUG USE FOR UNKNOWN INDICATION
     Dosage: 100 Milligram
     Route: 048
  13. DOXAZOSIN [Concomitant]
     Indication: DRUG USE FOR UNKNOWN INDICATION
     Dosage: 2 Milligram
     Route: 048
  14. NORCO [Concomitant]
     Indication: DRUG USE FOR UNKNOWN INDICATION
     Dosage: 5-325
     Route: 065
     Dates: start: 20120913
  15. OMEPRAZOLE [Concomitant]
     Indication: DRUG USE FOR UNKNOWN INDICATION
     Dosage: 20 Milligram
     Route: 048
  16. SIMVASTATIN [Concomitant]
     Indication: DRUG USE FOR UNKNOWN INDICATION
     Dosage: 40 Milligram
     Route: 048
     Dates: start: 20110512, end: 2012
  17. TIOTROPIUM [Concomitant]
     Indication: DRUG USE FOR UNKNOWN INDICATION
     Dosage: 18 Microgram
     Route: 055
     Dates: start: 20111205, end: 2012
  18. AUGMENTIN [Concomitant]
     Indication: DRUG USE FOR UNKNOWN INDICATION
     Dosage: 875-125
     Route: 048
     Dates: start: 20120913, end: 20120920
  19. FORADIL [Concomitant]
     Indication: DRUG USE FOR UNKNOWN INDICATION
     Dosage: 24 Microgram
     Route: 055
     Dates: start: 20120723, end: 20120920
  20. POTASSIUM CHLORIDE [Concomitant]
     Indication: DRUG USE FOR UNKNOWN INDICATION
     Dosage: MEQ
     Route: 048
     Dates: start: 20120912, end: 20120920
  21. FLUZONE [Concomitant]
     Indication: DRUG USE FOR UNKNOWN INDICATION
     Dosage: MEQ
     Route: 030
     Dates: start: 20111014

REACTIONS (1)
  - Acute myeloid leukaemia [Fatal]
